FAERS Safety Report 6888245-2 (Version None)
Quarter: 2010Q3

REPORT INFORMATION
  Report Type: 
  Country: None (occurrence: None)
  Receive Date: 20100730
  Receipt Date: 20100721
  Transmission Date: 20110219
  Serious: Yes (Hospitalization)
  Sender: FDA-Public Use
  Company Number: GXKR2010NL08272

PATIENT
  Age: 81 Year
  Sex: Male

DRUGS (7)
  1. LISINOPRIL [Suspect]
     Dosage: 20 MG, QD
     Route: 048
  2. AMLODIPINE [Suspect]
     Dosage: 10 MG, QD
     Route: 048
  3. ATENOLOL (NGX) [Suspect]
     Dosage: 100 MG, QD
     Route: 048
  4. DICLOFENAC (NGX) [Suspect]
     Dosage: 1 DF, TID
     Route: 048
  5. CHLORTHALIDONE [Suspect]
     Dosage: 2.5 MG, QD
     Route: 048
  6. ACETYLSALICYLIC ACID SRT [Concomitant]
     Dosage: 100 MG, QD
  7. OMEPRAZOLE [Concomitant]
     Dosage: 20 MG, QD

REACTIONS (7)
  - ABDOMINAL PAIN [None]
  - DEHYDRATION [None]
  - DIARRHOEA [None]
  - GASTROENTERITIS [None]
  - HYPERKALAEMIA [None]
  - RENAL FAILURE ACUTE [None]
  - URINE OUTPUT DECREASED [None]
